FAERS Safety Report 6470516-5 (Version None)
Quarter: 2009Q4

REPORT INFORMATION
  Report Type: 
  Country: None (occurrence: None)
  Receive Date: 20091202
  Receipt Date: 20091202
  Transmission Date: 20100525
  Serious: Yes (Life-Threatening)
  Sender: FDA-Public Use
  Company Number: None

PATIENT
  Age: 49 Year
  Sex: Male
  Weight: 81.6475 kg

DRUGS (15)
  1. SEROQUEL XR [Suspect]
     Indication: HEADACHE
     Dosage: 150 MG H.S. PO
     Route: 048
     Dates: start: 20091029, end: 20091111
  2. ASPIRIN [Concomitant]
  3. NIACIN [Concomitant]
  4. PRIMIDONE [Concomitant]
  5. PHENOBARBITAL [Concomitant]
  6. DIAZEPAM [Concomitant]
  7. LORAZEPAM [Concomitant]
  8. ZOLPIDEM [Concomitant]
  9. RANITIDINE [Concomitant]
  10. TESTOSTERONE CYPIONATE [Concomitant]
  11. CYCLOBENZAPRINE [Concomitant]
  12. AMOXICILLIN [Concomitant]
  13. SINGULAIR [Concomitant]
  14. VITAMIN D3 [Concomitant]
  15. LEVOTHYROXINE SODIUM [Concomitant]

REACTIONS (5)
  - DEPRESSION [None]
  - HEADACHE [None]
  - IMPULSIVE BEHAVIOUR [None]
  - SUICIDE ATTEMPT [None]
  - THINKING ABNORMAL [None]
